FAERS Safety Report 14543706 (Version 1)
Quarter: 2018Q1

REPORT INFORMATION
  Report Type: Spontaneous
  Country: MY (occurrence: MY)
  Receive Date: 20180216
  Receipt Date: 20180216
  Transmission Date: 20180509
  Serious: No
  Sender: FDA-Public Use
  Company Number: MY-SA-2018SA004373

PATIENT
  Age: 27 Year
  Sex: Female
  Weight: 80.2 kg

DRUGS (2)
  1. SULPHASALAZINE [Concomitant]
     Active Substance: SULFASALAZINE
     Indication: RHEUMATOID ARTHRITIS
     Dosage: REASSES DOSAGE
     Route: 065
     Dates: start: 20160406
  2. ARAVA [Suspect]
     Active Substance: LEFLUNOMIDE
     Indication: RHEUMATOID ARTHRITIS
     Route: 048
     Dates: start: 20171025, end: 20171213

REACTIONS (1)
  - Exposure during pregnancy [Unknown]
